FAERS Safety Report 25451378 (Version 1)
Quarter: 2025Q2

REPORT INFORMATION
  Report Type: Spontaneous
  Country: FR (occurrence: FR)
  Receive Date: 20250618
  Receipt Date: 20250618
  Transmission Date: 20250716
  Serious: Yes (Other)
  Sender: MYLAN
  Company Number: FR-MYLANLABS-2025M1050559

PATIENT
  Age: 39 Year
  Sex: Female

DRUGS (4)
  1. SERTRALINE [Suspect]
     Active Substance: SERTRALINE HYDROCHLORIDE
     Indication: Depression
     Dosage: UNK, BID (100MG IN THE MORNING AND 25MG IN THE EVENING
  2. SERTRALINE [Suspect]
     Active Substance: SERTRALINE HYDROCHLORIDE
     Indication: Anxiety
  3. SERTRALINE [Suspect]
     Active Substance: SERTRALINE HYDROCHLORIDE
     Indication: Depression
     Dosage: UNK, BID (100MG IN THE MORNING AND 25MG IN THE EVENING)
  4. SERTRALINE [Suspect]
     Active Substance: SERTRALINE HYDROCHLORIDE
     Indication: Anxiety

REACTIONS (4)
  - Suicidal ideation [Unknown]
  - Off label use [Unknown]
  - Panic attack [Unknown]
  - Product availability issue [Unknown]

NARRATIVE: CASE EVENT DATE: 20250501
